FAERS Safety Report 8805000 (Version 1)
Quarter: 2012Q4

REPORT INFORMATION
  Report Type: 
  Country: GB (occurrence: GB)
  Receive Date: 20120924
  Receipt Date: 20120924
  Transmission Date: 20130627
  Serious: Yes (Other)
  Sender: FDA-Public Use
  Company Number: GB-ABBOTT-12P-167-0980710-00

PATIENT
  Sex: Male

DRUGS (4)
  1. NORVIR [Suspect]
     Indication: HIV INFECTION
  2. ETRAVIRINE [Suspect]
     Indication: HIV INFECTION
     Dosage: Pharmaceutical form 245
     Route: 048
  3. DARUNAVIR [Suspect]
     Indication: HIV INFECTION
     Dosage: Pharmaceutical form 245
     Route: 048
  4. EMTRICITABINE [Suspect]
     Indication: HIV INFECTION

REACTIONS (1)
  - Acute hepatic failure [Unknown]
